FAERS Safety Report 8722677 (Version 3)
Quarter: 2012Q4

REPORT INFORMATION
  Report Type: 
  Country: US (occurrence: US)
  Receive Date: 20120814
  Receipt Date: 20121108
  Transmission Date: 20130627
  Serious: Yes (Hospitalization, Disabling, Other)
  Sender: FDA-Public Use
  Company Number: US-009507513-2011SP031111

PATIENT

DRUGS (1)
  1. NUVARING [Suspect]
     Indication: CONTRACEPTION
     Dosage: UNK
     Route: 067
     Dates: start: 200903, end: 20090801

REACTIONS (5)
  - Pulmonary embolism [Unknown]
  - Pneumonia [Unknown]
  - Influenza [Unknown]
  - Bronchitis [Unknown]
  - Coagulopathy [Unknown]
